FAERS Safety Report 24360974 (Version 1)
Quarter: 2024Q3

REPORT INFORMATION
  Report Type: Spontaneous
  Country: FR (occurrence: FR)
  Receive Date: 20240925
  Receipt Date: 20240925
  Transmission Date: 20241017
  Serious: Yes (Other)
  Sender: CELLTRION
  Company Number: None

PATIENT

DRUGS (1)
  1. INFLIXIMAB [Suspect]
     Active Substance: INFLIXIMAB
     Indication: Juvenile idiopathic arthritis
     Dosage: 1 CURE PAR MOIS
     Route: 058
     Dates: start: 20230405, end: 20230405

REACTIONS (2)
  - Tachycardia [Recovered/Resolved]
  - Intentional product use issue [Recovered/Resolved]

NARRATIVE: CASE EVENT DATE: 20230405
